FAERS Safety Report 19291886 (Version 1)
Quarter: 2021Q2

REPORT INFORMATION
  Report Type: Spontaneous
  Country: FR (occurrence: FR)
  Receive Date: 20210524
  Receipt Date: 20210524
  Transmission Date: 20210717
  Serious: Yes (Hospitalization, Other)
  Sender: FDA-Public Use
  Company Number: FR-BRISTOL-MYERS SQUIBB COMPANY-BMS-2021-049032

PATIENT
  Age: 92 Year
  Sex: Female
  Weight: 66.2 kg

DRUGS (2)
  1. OFLOCET [OFLOXACIN HYDROCHLORIDE] [Suspect]
     Active Substance: OFLOXACIN
     Indication: URINARY TRACT INFECTION
     Dosage: 2 DF, DAILY
     Route: 048
     Dates: start: 20210417, end: 20210420
  2. ELIQUIS [Suspect]
     Active Substance: APIXABAN
     Indication: CEREBROVASCULAR ACCIDENT PROPHYLAXIS
     Dosage: 2 DF; DAILY
     Route: 048
     Dates: end: 20210419

REACTIONS (2)
  - Dermatitis exfoliative generalised [Recovered/Resolved]
  - Vascular purpura [Recovered/Resolved]

NARRATIVE: CASE EVENT DATE: 20210418
